FAERS Safety Report 5576328-9 (Version None)
Quarter: 2007Q4

REPORT INFORMATION
  Report Type: 
  Country: None (occurrence: None)
  Receive Date: 20071228
  Receipt Date: 20071218
  Transmission Date: 20080405
  Serious: Yes (Disabling, Other)
  Sender: FDA-Public Use
  Company Number: BE-ROCHE-537957

PATIENT
  Age: 40 Year
  Sex: Female

DRUGS (2)
  1. ROACCUTANE [Suspect]
     Indication: SEBORRHOEA
     Dosage: STRENGTH: 3 X 10 MG, DAILY DOSE
     Route: 048
     Dates: start: 20061101, end: 20070201
  2. ROACCUTANE [Suspect]
     Dosage: DIALY DOSAGE
     Route: 048
     Dates: start: 20070501, end: 20070701

REACTIONS (4)
  - LIP DRY [None]
  - LIP EXFOLIATION [None]
  - LIP OEDEMA [None]
  - LIP PAIN [None]
